FAERS Safety Report 14829299 (Version 1)
Quarter: 2018Q2

REPORT INFORMATION
  Report Type: Spontaneous
  Country: US (occurrence: US)
  Receive Date: 20180430
  Receipt Date: 20180430
  Transmission Date: 20180711
  Serious: Yes (Hospitalization)
  Sender: FDA-Public Use
  Company Number: US-MALLINCKRODT-T201801684

PATIENT
  Sex: Female
  Weight: 68 kg

DRUGS (6)
  1. SIMVASTATIN. [Concomitant]
     Active Substance: SIMVASTATIN
     Indication: BLOOD CHOLESTEROL INCREASED
     Dosage: UNKNOWN
     Route: 065
  2. XANAX [Concomitant]
     Active Substance: ALPRAZOLAM
     Indication: ANXIETY
     Dosage: UNKNOWN
     Route: 065
  3. LEVOTHYROXINE. [Suspect]
     Active Substance: LEVOTHYROXINE
     Indication: HYPOTHYROIDISM
     Dosage: UNKNOWN
     Route: 048
     Dates: start: 201710, end: 201710
  4. OXYCODONE [Suspect]
     Active Substance: OXYCODONE
     Indication: MUSCULOSKELETAL PAIN
     Dosage: UNKNOWN
     Route: 065
     Dates: start: 20161230, end: 201701
  5. SYNTHROID [Suspect]
     Active Substance: LEVOTHYROXINE SODIUM
     Indication: HYPOTHYROIDISM
     Dosage: 75 MCG,1 IN 1- 2
     Route: 048
     Dates: start: 2015, end: 201710
  6. SYNTHROID [Suspect]
     Active Substance: LEVOTHYROXINE SODIUM
     Dosage: 75 MCG,1 IN 1- 2
     Route: 048
     Dates: start: 201710

REACTIONS (3)
  - Dyspepsia [Recovered/Resolved]
  - Drug hypersensitivity [Unknown]
  - Abnormal faeces [Recovered/Resolved]
